FAERS Safety Report 4470700-6 (Version None)
Quarter: 2004Q4

REPORT INFORMATION
  Report Type: 
  Country: None (occurrence: None)
  Receive Date: 20041006
  Receipt Date: 20041006
  Transmission Date: 20050328
  Serious: Yes (Hospitalization)
  Sender: FDA-Public Use
  Company Number: None

PATIENT
  Age: 45 Year
  Sex: Female

DRUGS (2)
  1. BENZOCAINE 20 % BEUTLICK L.P. PHARMACEUTICALS [Suspect]
     Indication: ANAESTHESIA
     Dosage: 20 % SPRAY 1/2 SEC X 1 ORAL
     Route: 048
     Dates: start: 20030322, end: 20030322
  2. BENZOCAINE 20 % BEUTLICK L.P. PHARMACEUTICALS [Suspect]
     Indication: ENDOSCOPY
     Dosage: 20 % SPRAY 1/2 SEC X 1 ORAL
     Route: 048
     Dates: start: 20030322, end: 20030322

REACTIONS (1)
  - ACQUIRED METHAEMOGLOBINAEMIA [None]
